FAERS Safety Report 16634334 (Version 1)
Quarter: 2019Q3

REPORT INFORMATION
  Report Type: Report from Study
  Country: US (occurrence: US)
  Receive Date: 20190726
  Receipt Date: 20190726
  Transmission Date: 20191004
  Serious: Yes (Death)
  Sender: FDA-Public Use
  Company Number: US-BEH-2019104793

PATIENT
  Age: 43 Year
  Sex: Male

DRUGS (1)
  1. HIZENTRA [Suspect]
     Active Substance: HUMAN IMMUNOGLOBULIN G
     Indication: CHRONIC INFLAMMATORY DEMYELINATING POLYRADICULONEUROPATHY
     Dosage: UNK
     Route: 058
     Dates: start: 201811, end: 20190720

REACTIONS (3)
  - Death [Fatal]
  - Malaise [Fatal]
  - Somnolence [Fatal]

NARRATIVE: CASE EVENT DATE: 20190719
